FAERS Safety Report 6790499-8 (Version None)
Quarter: 2010Q2

REPORT INFORMATION
  Report Type: 
  Country: None (occurrence: None)
  Receive Date: 20100624
  Receipt Date: 20100614
  Transmission Date: 20101027
  Serious: Yes (Other)
  Sender: FDA-Public Use
  Company Number: JP-PFIZER INC-2007012666

PATIENT
  Age: 61 Year
  Sex: Female

DRUGS (3)
  1. DOXORUBICIN HCL [Suspect]
     Indication: BREAST CANCER
  2. TAXOL [Suspect]
     Indication: BREAST CANCER
     Dosage: 80 MG/M2, UNK
  3. TAXOTERE [Suspect]
     Indication: BREAST CANCER
     Dosage: 60-75 MG/M2

REACTIONS (1)
  - SCLERODERMA [None]
